FAERS Safety Report 11453912 (Version 1)
Quarter: 2015Q3

REPORT INFORMATION
  Report Type: Spontaneous
  Country: JP (occurrence: JP)
  Receive Date: 20150903
  Receipt Date: 20150903
  Transmission Date: 20151125
  Serious: Yes (Hospitalization)
  Sender: FDA-Public Use
  Company Number: PHJP2015JP015154

PATIENT
  Age: 59 Year
  Sex: Male

DRUGS (1)
  1. CLOZARIL [Suspect]
     Active Substance: CLOZAPINE
     Indication: SCHIZOPHRENIA
     Dosage: 175 MG, QD
     Route: 048
     Dates: start: 20150701, end: 20150831

REACTIONS (6)
  - Diarrhoea [Unknown]
  - Nephritis [Unknown]
  - Infection [Unknown]
  - Pyrexia [Unknown]
  - Renal failure [Unknown]
  - Faeces soft [Unknown]

NARRATIVE: CASE EVENT DATE: 20150831
